FAERS Safety Report 20879008 (Version 1)
Quarter: 2022Q2

REPORT INFORMATION
  Report Type: Report from Study
  Country: CO (occurrence: CO)
  Receive Date: 20220526
  Receipt Date: 20220526
  Transmission Date: 20220721
  Serious: Yes (Hospitalization)
  Sender: FDA-Public Use
  Company Number: CO-JNJFOC-20220533399

PATIENT
  Age: 55 Year
  Sex: Female
  Weight: 92 kg

DRUGS (3)
  1. SIMPONI [Suspect]
     Active Substance: GOLIMUMAB
     Indication: Rheumatoid arthritis
     Dosage: LAST ADMINISTRATION WAS 25/APR/2022
     Route: 058
     Dates: start: 20220301
  2. FUROSEMIDE [Concomitant]
     Active Substance: FUROSEMIDE
  3. ROSUVASTATIN [Concomitant]
     Active Substance: ROSUVASTATIN

REACTIONS (6)
  - Pulmonary hypertension [Recovering/Resolving]
  - Cardiomegaly [Recovering/Resolving]
  - Sleep apnoea syndrome [Recovering/Resolving]
  - Hordeolum [Recovering/Resolving]
  - Oral discomfort [Recovering/Resolving]
  - Tooth abscess [Recovering/Resolving]

NARRATIVE: CASE EVENT DATE: 20220401
